FAERS Safety Report 13489123 (Version 1)
Quarter: 2017Q2

REPORT INFORMATION
  Report Type: Spontaneous
  Country: US (occurrence: US)
  Receive Date: 20170426
  Receipt Date: 20170426
  Transmission Date: 20170830
  Serious: Yes (Hospitalization)
  Sender: FDA-Public Use
  Company Number: None

PATIENT
  Age: 71 Year
  Sex: Female
  Weight: 49.5 kg

DRUGS (5)
  1. VALSARVAN [Concomitant]
  2. VIT B COMPLEX [Concomitant]
  3. VITAMIN C COMPLEX [Concomitant]
  4. CREON [Suspect]
     Active Substance: PANCRELIPASE AMYLASE\PANCRELIPASE LIPASE\PANCRELIPASE PROTEASE
     Indication: PANCREATIC FAILURE
     Dosage: ?          QUANTITY:3 CAPSULE(S);?
     Route: 048
     Dates: start: 20170403, end: 20170411
  5. VITAMIN D [Concomitant]
     Active Substance: CHOLECALCIFEROL

REACTIONS (6)
  - Asthenia [None]
  - Hyperventilation [None]
  - Nausea [None]
  - Dyspnoea [None]
  - Respiratory distress [None]
  - Fatigue [None]

NARRATIVE: CASE EVENT DATE: 20170413
